FAERS Safety Report 17676484 (Version 7)
Quarter: 2020Q3

REPORT INFORMATION
  Report Type: Report from Study
  Country: US (occurrence: US)
  Receive Date: 20200416
  Receipt Date: 20200703
  Transmission Date: 20201102
  Serious: Yes (Other)
  Sender: FDA-Public Use
  Company Number: NVSC2020US102005

PATIENT
  Age: 66 Year
  Sex: Female

DRUGS (2)
  1. ENTRESTO [Suspect]
     Active Substance: SACUBITRIL\VALSARTAN
     Indication: CARDIAC FAILURE
     Dosage: 50 MG, BID
     Route: 048
     Dates: start: 202004
  2. ENTRESTO [Suspect]
     Active Substance: SACUBITRIL\VALSARTAN
     Dosage: 1.5 DF, BID
     Route: 065

REACTIONS (11)
  - Weight increased [Recovering/Resolving]
  - Sleep apnoea syndrome [Not Recovered/Not Resolved]
  - Chest discomfort [Unknown]
  - Hypertension [Unknown]
  - Anxiety [Unknown]
  - Back pain [Unknown]
  - Snoring [Not Recovered/Not Resolved]
  - Wrong technique in product usage process [Unknown]
  - Depressed mood [Unknown]
  - Fatigue [Unknown]
  - Atrial fibrillation [Recovered/Resolved]

NARRATIVE: CASE EVENT DATE: 202004
